FAERS Safety Report 19260837 (Version 2)
Quarter: 2021Q3

REPORT INFORMATION
  Report Type: Spontaneous
  Country: US (occurrence: US)
  Receive Date: 20210515
  Receipt Date: 20210818
  Transmission Date: 20211014
  Serious: No
  Sender: FDA-Public Use
  Company Number: US-SA-2021SA161125

PATIENT
  Age: 84 Year
  Sex: Female

DRUGS (1)
  1. DUPIXENT [Suspect]
     Active Substance: DUPILUMAB
     Indication: DERMATITIS ATOPIC
     Dosage: 300 MG, QOW
     Route: 058
     Dates: start: 20210506

REACTIONS (2)
  - Injection site discolouration [Unknown]
  - Skin lesion [Unknown]

NARRATIVE: CASE EVENT DATE: 20210506
